FAERS Safety Report 15473543 (Version 1)
Quarter: 2018Q4

REPORT INFORMATION
  Report Type: Spontaneous
  Country: CO (occurrence: CO)
  Receive Date: 20181008
  Receipt Date: 20181008
  Transmission Date: 20190205
  Serious: Yes (Other)
  Sender: FDA-Public Use
  Company Number: CO-IMPAX LABORATORIES, INC-2018-IPXL-03238

PATIENT
  Age: 33 Year
  Sex: Female

DRUGS (3)
  1. POTASSIUM CITRATE ER [Suspect]
     Active Substance: POTASSIUM CITRATE
     Indication: HYPEROXALURIA
     Dosage: UNK
     Route: 065
  2. HYDROCHLOROTHIAZIDE. [Suspect]
     Active Substance: HYDROCHLOROTHIAZIDE
     Indication: HYPEROXALURIA
     Dosage: UNK
     Route: 065
  3. PYRIDOXINE [Suspect]
     Active Substance: PYRIDOXINE
     Indication: HYPEROXALURIA
     Dosage: UNK
     Route: 065

REACTIONS (2)
  - Transplant dysfunction [Not Recovered/Not Resolved]
  - End stage renal disease [Not Recovered/Not Resolved]
